FAERS Safety Report 17231625 (Version 1)
Quarter: 2020Q1

REPORT INFORMATION
  Report Type: Spontaneous
  Country: US (occurrence: US)
  Receive Date: 20200103
  Receipt Date: 20200103
  Transmission Date: 20200409
  Serious: No
  Sender: FDA-Public Use
  Company Number: US-BAYER-2019-237567

PATIENT
  Age: 81 Year
  Sex: Male

DRUGS (5)
  1. MIRALAX [Suspect]
     Active Substance: POLYETHYLENE GLYCOL 3350
     Indication: GASTROINTESTINAL DISORDER
     Dosage: 17 G, QD
     Route: 048
     Dates: start: 201907
  2. VITAMINS NOS [Concomitant]
     Active Substance: VITAMINS
  3. VITAMINS NOS [Concomitant]
     Active Substance: VITAMINS
  4. MIRALAX [Suspect]
     Active Substance: POLYETHYLENE GLYCOL 3350
     Indication: GASTROINTESTINAL DISORDER
     Dosage: LESS THAN 17G DOSAGE
     Route: 048
     Dates: start: 2019
  5. SENNA-S [DOCUSATE SODIUM;SENNOSIDE A+B] [Concomitant]

REACTIONS (3)
  - Product solubility abnormal [None]
  - Incorrect dose administered [Unknown]
  - Incorrect product administration duration [Unknown]

NARRATIVE: CASE EVENT DATE: 2019
